FAERS Safety Report 13321655 (Version 1)
Quarter: 2017Q1

REPORT INFORMATION
  Report Type: Spontaneous
  Country: FR (occurrence: FR)
  Receive Date: 20170310
  Receipt Date: 20170310
  Transmission Date: 20170428
  Serious: Yes (Other)
  Sender: FDA-Public Use
  Company Number: FR-PFIZER INC-2017093902

PATIENT
  Age: 75 Year
  Sex: Female

DRUGS (7)
  1. CARBOPLATINE HOSPIRA [Suspect]
     Active Substance: CARBOPLATIN
     Dosage: DOSE REDUCED
     Dates: start: 201609, end: 20161208
  2. PACLITAXEL HOSPIRA [Suspect]
     Active Substance: PACLITAXEL
     Indication: ADENOCARCINOMA OF SALIVARY GLAND
     Dosage: 600 MG, CYCLIC
     Route: 042
     Dates: start: 20160614
  3. TAHOR [Concomitant]
     Active Substance: ATORVASTATIN CALCIUM
     Dosage: UNK
  4. CERIS [Concomitant]
     Active Substance: TROSPIUM CHLORIDE
     Dosage: UNK
  5. TAREG [Concomitant]
     Active Substance: VALSARTAN
     Dosage: UNK
  6. CARBOPLATINE HOSPIRA [Suspect]
     Active Substance: CARBOPLATIN
     Indication: ADENOCARCINOMA OF SALIVARY GLAND
     Dosage: 460 MG, CYCLIC ONCE IN 21-DAY-CYCLE
     Route: 042
     Dates: start: 20160614
  7. PACLITAXEL HOSPIRA [Suspect]
     Active Substance: PACLITAXEL
     Dosage: DOSE REDUCED
     Route: 042
     Dates: start: 201609, end: 20161208

REACTIONS (4)
  - Face oedema [Unknown]
  - Oedema peripheral [Unknown]
  - Pericardial effusion [Not Recovered/Not Resolved]
  - Eyelid oedema [Unknown]

NARRATIVE: CASE EVENT DATE: 201609
